FAERS Safety Report 23644684 (Version 1)
Quarter: 2024Q1

REPORT INFORMATION
  Report Type: Spontaneous
  Country: US (occurrence: None)
  Receive Date: 20240317
  Receipt Date: 20240317
  Transmission Date: 20240410
  Serious: Yes (Other)
  Sender: FDA-Public Use
  Company Number: None

PATIENT
  Age: 65 Year
  Sex: Female
  Weight: 74.25 kg

DRUGS (3)
  1. ROSUVASTATIN [Suspect]
     Active Substance: ROSUVASTATIN
     Indication: Blood cholesterol increased
     Dates: start: 20230101, end: 20240115
  2. AMLODIPINE [Concomitant]
     Active Substance: AMLODIPINE BESYLATE
  3. METOPROLOL [Concomitant]
     Active Substance: METOPROLOL

REACTIONS (7)
  - Feeling abnormal [None]
  - Abdominal pain [None]
  - Abdominal distension [None]
  - Upper respiratory tract inflammation [None]
  - Therapy cessation [None]
  - Renal failure [None]
  - Prescribed overdose [None]

NARRATIVE: CASE EVENT DATE: 20230601
